FAERS Safety Report 9004952 (Version 1)
Quarter: 2013Q1

REPORT INFORMATION
  Report Type: Spontaneous
  Country: US (occurrence: US)
  Receive Date: 20130109
  Receipt Date: 20130109
  Transmission Date: 20140127
  Serious: Yes (Hospitalization)
  Sender: FDA-Public Use
  Company Number: US-BAYER-2013-000875

PATIENT
  Age: 20 Year
  Sex: Female

DRUGS (6)
  1. YASMIN [Suspect]
  2. QVAR [Concomitant]
     Dosage: UNK
     Route: 045
     Dates: start: 20070608
  3. ALBUTEROL [Concomitant]
     Dosage: UNK
     Route: 045
     Dates: start: 20070608
  4. NASAREL [Concomitant]
     Dosage: UNK
     Route: 045
     Dates: start: 20070608
  5. ZYRTEC [Concomitant]
     Dosage: UNK
     Route: 048
     Dates: start: 20070608
  6. ALLEGRA [Concomitant]
     Dosage: UNK
     Route: 048
     Dates: start: 20070606

REACTIONS (1)
  - Deep vein thrombosis [Not Recovered/Not Resolved]
